FAERS Safety Report 20803781 (Version 1)
Quarter: 2022Q2

REPORT INFORMATION
  Report Type: Spontaneous
  Country: US (occurrence: US)
  Receive Date: 20220509
  Receipt Date: 20220509
  Transmission Date: 20220720
  Serious: No
  Sender: FDA-Public Use
  Company Number: US-PFIZER INC-202200654733

PATIENT
  Age: 69 Year
  Sex: Female
  Weight: 56.7 kg

DRUGS (3)
  1. PAXLOVID [Interacting]
     Active Substance: NIRMATRELVIR\RITONAVIR
     Indication: COVID-19 treatment
     Dosage: TWO 150 MG TABLETS WITH 100 MG TABLET, THREE TABLETS IN THE MORNING AND THREE TABLET IN THE EVENING
     Route: 048
     Dates: start: 20220501
  2. SIMVASTATIN [Interacting]
     Active Substance: SIMVASTATIN
     Dosage: 40 MG
  3. LISINOPRIL [Concomitant]
     Active Substance: LISINOPRIL
     Indication: Blood pressure abnormal
     Dosage: 10 MG

REACTIONS (4)
  - Drug interaction [Unknown]
  - Diarrhoea [Unknown]
  - Faeces discoloured [Unknown]
  - Contraindicated product administered [Unknown]
